FAERS Safety Report 15882654 (Version 1)
Quarter: 2019Q1

REPORT INFORMATION
  Report Type: Spontaneous
  Country: FR (occurrence: FR)
  Receive Date: 20190129
  Receipt Date: 20190129
  Transmission Date: 20190417
  Serious: Yes (Hospitalization)
  Sender: FDA-Public Use
  Company Number: FR-TEVA-2019-FR-1003938

PATIENT
  Age: 24 Year
  Sex: Female
  Weight: 80 kg

DRUGS (6)
  1. SOLUPRED 20 MG, COMPRIM? EFFERVESCENT [Suspect]
     Active Substance: PREDNISOLONE SODIUM METAZOATE
     Indication: EAR INFECTION
     Dosage: 50 MILLIGRAM DAILY;
     Route: 048
     Dates: start: 20181016, end: 20181016
  2. EFFERALGAN CODEINE, COMPRIM? EFFERVESCENT S?CABLE [Suspect]
     Active Substance: ACETAMINOPHEN\CODEINE PHOSPHATE
     Indication: EAR INFECTION
     Dosage: 3 DOSAGE FORMS DAILY;
     Route: 048
     Dates: start: 20181016, end: 20181016
  3. OFLOXACINE [Suspect]
     Active Substance: OFLOXACIN
     Indication: EAR INFECTION
     Dosage: UNKNOWN
     Route: 048
     Dates: start: 20181015, end: 20181016
  4. PANOTILE, SOLUTION POUR INSTILLATION AURICULAIRE [Concomitant]
     Route: 001
     Dates: start: 20181016, end: 20181023
  5. PYOSTACINE 500 MG, COMPRIM? PELLICUL? S?CABLE [Concomitant]
     Active Substance: PRISTINAMYCIN
     Indication: EAR INFECTION
     Dosage: 4 DOSAGE FORMS DAILY;
     Route: 048
     Dates: start: 20181016, end: 20181023
  6. DOLIPRANE [Concomitant]
     Active Substance: ACETAMINOPHEN
     Indication: PAIN
     Dosage: UNKNOWN
     Route: 048
     Dates: start: 20181015, end: 20181016

REACTIONS (1)
  - Pancreatitis [Recovered/Resolved]

NARRATIVE: CASE EVENT DATE: 20181016
